FAERS Safety Report 15867572 (Version 1)
Quarter: 2019Q1

REPORT INFORMATION
  Report Type: Spontaneous
  Country: US (occurrence: US)
  Receive Date: 20190102
  Receipt Date: 20190102
  Transmission Date: 20190417
  Serious: No
  Sender: FDA-Public Use
  Company Number: None

PATIENT
  Sex: Female
  Weight: 59.87 kg

DRUGS (10)
  1. SIMETHICONE (DIMETHICONE) [Concomitant]
     Active Substance: DIMETHICONE
  2. CVS DIGESTIVE PROBIOTICS [Concomitant]
  3. VALIUM [Concomitant]
     Active Substance: DIAZEPAM
  4. PROPRANOLOL [Concomitant]
     Active Substance: PROPRANOLOL HYDROCHLORIDE
  5. LOSARTAN. [Concomitant]
     Active Substance: LOSARTAN
  6. FAMOTIDINE. [Concomitant]
     Active Substance: FAMOTIDINE
  7. SPECTRAVITE MULTIVITAMIN ULTRA WOMEN [Concomitant]
  8. LYOPHILIZED LACTOSE [Concomitant]
  9. PROPRANOLOL [Suspect]
     Active Substance: PROPRANOLOL HYDROCHLORIDE
     Indication: PALPITATIONS
     Dosage: ?          OTHER STRENGTH:10MM;QUANTITY:ONE;?
     Route: 048
     Dates: start: 20181114
  10. MAXIMUM STRENGTH ANTACID [Concomitant]
     Active Substance: ALUMINUM HYDROXIDE\DIMETHICONE\MAGNESIUM HYDROXIDE

REACTIONS (4)
  - Product substitution issue [None]
  - Nausea [None]
  - Burning sensation [None]
  - Muscle spasms [None]
